FAERS Safety Report 11619447 (Version 2)
Quarter: 2019Q3

REPORT INFORMATION
  Report Type: Spontaneous
  Country: US (occurrence: US)
  Receive Date: 20151012
  Receipt Date: 20190823
  Transmission Date: 20191004
  Serious: Yes (Death, Hospitalization, Other)
  Sender: FDA-Public Use
  Company Number: US-009507513-1510USA004950

PATIENT
  Sex: Male
  Weight: 64.85 kg

DRUGS (2)
  1. JANUVIA [Suspect]
     Active Substance: SITAGLIPTIN PHOSPHATE
     Dosage: 50 MG, ONCE DAILY
     Route: 048
     Dates: start: 20110228, end: 20110516
  2. JANUVIA [Suspect]
     Active Substance: SITAGLIPTIN PHOSPHATE
     Dosage: 100 MG, ONCE DAILY
     Route: 048
     Dates: start: 20110517, end: 201309

REACTIONS (24)
  - Haematemesis [Unknown]
  - Polyneuropathy [Not Recovered/Not Resolved]
  - Pleural effusion [Unknown]
  - Gastrointestinal haemorrhage [Unknown]
  - Gastritis [Unknown]
  - Pneumonia bacterial [Unknown]
  - Respiratory failure [Recovered/Resolved]
  - Pneumonia [Unknown]
  - Spinal osteoarthritis [Unknown]
  - Nasal polyps [Unknown]
  - Arteriosclerosis [Unknown]
  - Hypotension [Recovered/Resolved]
  - Prostate cancer [Unknown]
  - Discoloured vomit [Recovered/Resolved]
  - Dehydration [Unknown]
  - Sepsis [Recovered/Resolved]
  - Pancreatic carcinoma [Fatal]
  - Cerebrovascular accident [Recovered/Resolved]
  - Pancytopenia [Unknown]
  - Anaemia [Recovering/Resolving]
  - Helicobacter infection [Unknown]
  - Chronic obstructive pulmonary disease [Unknown]
  - Intestinal malrotation [Unknown]
  - Duodenal obstruction [Unknown]

NARRATIVE: CASE EVENT DATE: 20120104
